FAERS Safety Report 9247290 (Version 1)
Quarter: 2013Q1

REPORT INFORMATION
  Report Type: Spontaneous
  Country: US (occurrence: None)
  Receive Date: 20121130
  Receipt Date: 20121130
  Transmission Date: 20140127
  Serious: Yes (Hospitalization)
  Sender: FDA-Public Use
  Company Number: FK201102952

PATIENT
  Age: 63 Year
  Sex: Female

DRUGS (3)
  1. FLUOROURACIL INJECTION, USP (FLUOROURACIL) (FLUOROURACIL) [Suspect]
     Indication: HEPATIC CANCER
     Route: 042
     Dates: start: 20110811
  2. IRINOTECAN (IRINOTECAN) [Suspect]
     Indication: HEPATIC CANCER
     Dosage: 360 MG OVER 90 MINUTES
     Route: 042
  3. LEUCOVORIN CALCIUM [Suspect]
     Indication: HEPATIC CANCER
     Route: 042

REACTIONS (2)
  - Pancytopenia [None]
  - Pneumonia [None]
